FAERS Safety Report 5440462-4 (Version None)
Quarter: 2007Q3

REPORT INFORMATION
  Report Type: 
  Country: None (occurrence: None)
  Receive Date: 20070831
  Receipt Date: 20070821
  Transmission Date: 20080115
  Serious: Yes (Hospitalization)
  Sender: FDA-Public Use
  Company Number: BE-ELI_LILLY_AND_COMPANY-BE200708004551

PATIENT
  Age: 74 Year
  Sex: Male

DRUGS (5)
  1. CIALIS [Suspect]
     Dosage: 20 MG, AS NEEDED
     Route: 048
  2. PERINDOPRIL ERBUMINE [Concomitant]
     Indication: HYPERTENSION
  3. MARCUMAR [Concomitant]
     Indication: PLATELET AGGREGATION
  4. BURINEX [Concomitant]
  5. LIPITOR [Concomitant]
     Indication: HYPERLIPIDAEMIA

REACTIONS (2)
  - ARRHYTHMIA SUPRAVENTRICULAR [None]
  - CARDIAC ARREST [None]
